FAERS Safety Report 7546714-6 (Version None)
Quarter: 2011Q2

REPORT INFORMATION
  Report Type: 
  Country: None (occurrence: None)
  Receive Date: 20110614
  Receipt Date: 20110610
  Transmission Date: 20111010
  Serious: Yes (Other)
  Sender: FDA-Public Use
  Company Number: A0869059A

PATIENT
  Sex: Male

DRUGS (1)
  1. AVANDIA [Suspect]
     Indication: DIABETES MELLITUS
     Route: 048
     Dates: start: 20060301, end: 20070601

REACTIONS (5)
  - VISION BLURRED [None]
  - ASTHENIA [None]
  - MUSCULOSKELETAL DISORDER [None]
  - DIZZINESS [None]
  - MYOCARDIAL INFARCTION [None]
